FAERS Safety Report 13570869 (Version 1)
Quarter: 2017Q2

REPORT INFORMATION
  Report Type: Spontaneous
  Country: US (occurrence: US)
  Receive Date: 20170522
  Receipt Date: 20170522
  Transmission Date: 20170830
  Serious: Yes (Hospitalization)
  Sender: FDA-Public Use
  Company Number: None

PATIENT
  Age: 88 Year
  Sex: Male
  Weight: 90.9 kg

DRUGS (1)
  1. RIVAROXOBAN [Suspect]
     Active Substance: RIVAROXABAN
     Indication: ATRIAL FIBRILLATION
     Route: 048

REACTIONS (4)
  - Haemoglobin decreased [None]
  - Rectal haemorrhage [None]
  - Haematocrit decreased [None]
  - Penile haemorrhage [None]

NARRATIVE: CASE EVENT DATE: 20170516
